FAERS Safety Report 19482989 (Version 1)
Quarter: 2021Q3

REPORT INFORMATION
  Report Type: Spontaneous
  Country: US (occurrence: US)
  Receive Date: 20210701
  Receipt Date: 20210701
  Transmission Date: 20211014
  Serious: Yes (Hospitalization, Other)
  Sender: FDA-Public Use
  Company Number: US-TAKEDA-2021TUS039044

PATIENT
  Age: 61 Year
  Sex: Female
  Weight: 71.7 kg

DRUGS (20)
  1. GAMMAGARD [Suspect]
     Active Substance: HUMAN IMMUNOGLOBULIN G
     Dosage: SPREAD OVER 3 DAYS
     Route: 042
     Dates: start: 2021, end: 2021
  2. MYRBETRIQ [Concomitant]
     Active Substance: MIRABEGRON
  3. CRESTOR [Concomitant]
     Active Substance: ROSUVASTATIN CALCIUM
  4. BABY ASPIRIN [Concomitant]
     Active Substance: ASPIRIN
  5. MELATONIN [Concomitant]
     Active Substance: MELATONIN
  6. LISINOPRIL. [Concomitant]
     Active Substance: LISINOPRIL
  7. IRON [Concomitant]
     Active Substance: IRON
  8. XYZAL [Concomitant]
     Active Substance: LEVOCETIRIZINE DIHYDROCHLORIDE
  9. CALTRATE WITH VITAMIN D [Concomitant]
     Active Substance: CALCIUM CARBONATE\CHOLECALCIFEROL
  10. PREDNISONE. [Concomitant]
     Active Substance: PREDNISONE
  11. GAMMAGARD [Suspect]
     Active Substance: HUMAN IMMUNOGLOBULIN G
     Dosage: LOWER RATE OF INFUSION SPREAD OVER 4 DAYS
     Route: 042
     Dates: start: 2021, end: 2021
  12. TYLENOL [Concomitant]
     Active Substance: ACETAMINOPHEN
  13. GAMMAGARD [Suspect]
     Active Substance: HUMAN IMMUNOGLOBULIN G
     Indication: PRODUCT USED FOR UNKNOWN INDICATION
     Dosage: UNK
     Route: 065
     Dates: end: 2021
  14. FIRDAPSE [Suspect]
     Active Substance: AMIFAMPRIDINE PHOSPHATE
     Indication: MYASTHENIC SYNDROME
     Dosage: 20 MILLIGRAM, TID
     Route: 048
     Dates: start: 20200717
  15. LOVAZA [Concomitant]
     Active Substance: OMEGA-3-ACID ETHYL ESTERS
  16. ATENOLOL. [Concomitant]
     Active Substance: ATENOLOL
  17. MAGNESIUM [Concomitant]
     Active Substance: MAGNESIUM
  18. GUAIFENESIN. [Concomitant]
     Active Substance: GUAIFENESIN
  19. NEXIUM [Concomitant]
     Active Substance: ESOMEPRAZOLE MAGNESIUM
  20. DYMISTA [Concomitant]
     Active Substance: AZELASTINE HYDROCHLORIDE\FLUTICASONE PROPIONATE

REACTIONS (4)
  - Meningitis chemical [Recovered/Resolved]
  - Blood potassium increased [Recovered/Resolved]
  - Protein total increased [Recovered/Resolved]
  - Blood sodium decreased [Recovered/Resolved]

NARRATIVE: CASE EVENT DATE: 20210522
